FAERS Safety Report 16422579 (Version 1)
Quarter: 2019Q2

REPORT INFORMATION
  Report Type: Spontaneous
  Country: GB (occurrence: GB)
  Receive Date: 20190612
  Receipt Date: 20190612
  Transmission Date: 20190711
  Serious: Yes (Other)
  Sender: FDA-Public Use
  Company Number: GB-MYLANLABS-2019M1054080

PATIENT
  Age: 23 Year
  Sex: Female
  Weight: 92.98 kg

DRUGS (2)
  1. MIRTAZAPINE. [Suspect]
     Active Substance: MIRTAZAPINE
     Indication: DEPRESSION
     Dosage: 15 MILLIGRAM
     Route: 048
     Dates: start: 20181201, end: 20181203
  2. MIRTAZAPINE. [Suspect]
     Active Substance: MIRTAZAPINE
     Indication: ANXIETY

REACTIONS (13)
  - Abnormal dreams [Not Recovered/Not Resolved]
  - Amnesia [Recovered/Resolved with Sequelae]
  - Tremor [Recovering/Resolving]
  - Confusional state [Recovered/Resolved]
  - Gait disturbance [Recovered/Resolved]
  - Increased appetite [Not Recovered/Not Resolved]
  - Hypersomnia [Not Recovered/Not Resolved]
  - Hyperhidrosis [Recovering/Resolving]
  - Dizziness [Not Recovered/Not Resolved]
  - Muscular weakness [Unknown]
  - Dysarthria [Recovered/Resolved]
  - Disorientation [Recovering/Resolving]
  - Muscle twitching [Recovered/Resolved]

NARRATIVE: CASE EVENT DATE: 20181201
